FAERS Safety Report 8474244-6 (Version None)
Quarter: 2012Q2

REPORT INFORMATION
  Report Type: 
  Country: None (occurrence: None)
  Receive Date: 20120628
  Receipt Date: 20120619
  Transmission Date: 20120825
  Serious: Yes (Hospitalization)
  Sender: FDA-Public Use
  Company Number: US-BAYER-2012-022029

PATIENT
  Age: 26 Year
  Sex: Female
  Weight: 99.773 kg

DRUGS (14)
  1. PHENERGAN HCL [Concomitant]
     Dosage: 25 MG, 1 EVERY 6 HOURS
     Route: 048
  2. NSAID'S [Concomitant]
     Dosage: 2 PER WEEK
     Route: 048
  3. NEXIUM [Concomitant]
     Dosage: 40 MG, DAILY
     Route: 048
  4. YASMIN [Suspect]
     Indication: MENSTRUAL CYCLE MANAGEMENT
  5. VICODIN [Concomitant]
     Dosage: 1-2 EVERY 4-6 HRS
     Route: 048
  6. HYOSCYAMINE [Concomitant]
     Dosage: 0.125 MG, Q4HR
     Route: 048
  7. DROSPIRENONE AND ETHINYL ESTRADIOL [Suspect]
     Indication: CONTRACEPTION
  8. ALIMENTARY TRACT AND METABOLISM [Concomitant]
     Route: 048
  9. ALKA SELTZER [Concomitant]
     Route: 048
  10. YASMIN [Suspect]
     Indication: CONTRACEPTION
  11. DROSPIRENONE AND ETHINYL ESTRADIOL [Suspect]
     Indication: MENSTRUAL CYCLE MANAGEMENT
     Dosage: UNK
     Dates: start: 20080601, end: 20100101
  12. EXCEDRIN (MIGRAINE) [Concomitant]
     Route: 048
  13. BISMUTH SUBSALICYLATE [Concomitant]
     Route: 048
  14. YASMIN [Suspect]
     Indication: OVULATION PAIN
     Dosage: UNK
     Dates: start: 20080401, end: 20080601

REACTIONS (10)
  - CHOLECYSTITIS CHRONIC [None]
  - ABDOMINAL PAIN UPPER [None]
  - NAUSEA [None]
  - VOMITING [None]
  - PAIN [None]
  - CHOLELITHIASIS [None]
  - CHEST PAIN [None]
  - DEPRESSION [None]
  - INJURY [None]
  - INSOMNIA [None]
